FAERS Safety Report 25673971 (Version 1)
Quarter: 2025Q3

REPORT INFORMATION
  Report Type: Spontaneous
  Country: EU (occurrence: EU)
  Receive Date: 20250813
  Receipt Date: 20250813
  Transmission Date: 20251021
  Serious: Yes (Other)
  Sender: AUROBINDO
  Company Number: EU-ZENTIVA-2025-ZT-043588

PATIENT
  Age: 36 Week

DRUGS (2)
  1. SERTRALINE [Suspect]
     Active Substance: SERTRALINE HYDROCHLORIDE
     Indication: Depression
     Route: 064
  2. NITRIC OXIDE [Concomitant]
     Active Substance: NITRIC OXIDE
     Indication: Product used for unknown indication

REACTIONS (10)
  - Pulmonary hypertension [Unknown]
  - Respiratory distress [Unknown]
  - Pulmonary hypertensive crisis [Unknown]
  - Interstitial lung abnormality [Unknown]
  - Newborn persistent pulmonary hypertension [Recovering/Resolving]
  - Right ventricular hypertrophy [Unknown]
  - Pulmonary artery wall hypertrophy [Unknown]
  - Right ventricular systolic pressure [Recovering/Resolving]
  - Foetal exposure during pregnancy [Unknown]
  - Maternal exposure timing unspecified [Recovered/Resolved]
